FAERS Safety Report 23725896 (Version 3)
Quarter: 2024Q2

REPORT INFORMATION
  Report Type: Spontaneous
  Country: US (occurrence: US)
  Receive Date: 20240410
  Receipt Date: 20240426
  Transmission Date: 20240716
  Serious: Yes (Other)
  Sender: FDA-Public Use
  Company Number: US-AUROBINDO-AUR-APL-2024-016486

PATIENT
  Age: 24 Year
  Sex: Female
  Weight: 64.8 kg

DRUGS (1)
  1. AMOXICILLIN\CLAVULANATE POTASSIUM [Suspect]
     Active Substance: AMOXICILLIN\CLAVULANATE POTASSIUM
     Indication: Sinusitis
     Dosage: UNK
     Route: 065
     Dates: start: 20230801

REACTIONS (7)
  - Loss of consciousness [Unknown]
  - Blood glucose decreased [Unknown]
  - Visual impairment [Unknown]
  - Abnormal dreams [Unknown]
  - Feeling abnormal [Unknown]
  - Product colour issue [Unknown]
  - Product physical issue [Unknown]
